FAERS Safety Report 7036759-7 (Version None)
Quarter: 2010Q4

REPORT INFORMATION
  Report Type: 
  Country: None (occurrence: None)
  Receive Date: 20101011
  Receipt Date: 20100930
  Transmission Date: 20110411
  Serious: Yes (Other)
  Sender: FDA-Public Use
  Company Number: MX-ELI_LILLY_AND_COMPANY-MX201010000267

PATIENT
  Age: 55 Year
  Sex: Male

DRUGS (1)
  1. HUMALOG MIX 75/25 [Suspect]
     Indication: BLOOD GLUCOSE INCREASED
     Dosage: 40 IU, DAILY (1/D)
     Route: 058
     Dates: start: 20030101

REACTIONS (7)
  - ANGINA UNSTABLE [None]
  - BLOOD PRESSURE INCREASED [None]
  - FAECAL INCONTINENCE [None]
  - HEADACHE [None]
  - HEART RATE INCREASED [None]
  - PALLOR [None]
  - TINNITUS [None]
